FAERS Safety Report 5709054-3 (Version None)
Quarter: 2008Q2

REPORT INFORMATION
  Report Type: 
  Country: None (occurrence: None)
  Receive Date: 20080416
  Receipt Date: 20080416
  Transmission Date: 20081010
  Serious: No
  Sender: FDA-Public Use
  Company Number: None

PATIENT

DRUGS (1)
  1. CAPOTEN [Suspect]
     Indication: HYPERTENSION
     Dosage: 75 MG. B.I.D. ORALLY
     Route: 048
     Dates: start: 20030101

REACTIONS (3)
  - ANGIOEDEMA [None]
  - PHARMACEUTICAL PRODUCT COMPLAINT [None]
  - URTICARIA [None]
